FAERS Safety Report 17998373 (Version 3)
Quarter: 2021Q2

REPORT INFORMATION
  Report Type: Spontaneous
  Country: US (occurrence: US)
  Receive Date: 20200709
  Receipt Date: 20210407
  Transmission Date: 20210717
  Serious: No
  Sender: FDA-Public Use
  Company Number: US-LUNDBECK-DKLU3018333

PATIENT
  Age: 42 Year
  Sex: Female
  Weight: 133 kg

DRUGS (4)
  1. NORTHERA [Suspect]
     Active Substance: DROXIDOPA
     Indication: ORTHOSTATIC HYPOTENSION
     Route: 065
  2. NORTHERA [Suspect]
     Active Substance: DROXIDOPA
     Indication: AUTONOMIC NEUROPATHY
     Dosage: TITRATION COMPLETE
     Route: 048
     Dates: start: 20160927
  3. NORTHERA [Suspect]
     Active Substance: DROXIDOPA
     Indication: MYASTHENIA GRAVIS
     Route: 065
     Dates: start: 20191219
  4. PREDNISONE. [Suspect]
     Active Substance: PREDNISONE
     Indication: PRODUCT USED FOR UNKNOWN INDICATION
     Route: 065

REACTIONS (2)
  - Dysstasia [Unknown]
  - Hypotension [Unknown]

NARRATIVE: CASE EVENT DATE: 20200705
